FAERS Safety Report 7978390-2 (Version None)
Quarter: 2011Q4

REPORT INFORMATION
  Report Type: 
  Country: None (occurrence: None)
  Receive Date: 20111214
  Receipt Date: 20111206
  Transmission Date: 20120403
  Serious: Yes (Disabling)
  Sender: FDA-Public Use
  Company Number: AU-ABBOTT-11P-008-0880636-00

PATIENT
  Sex: Male

DRUGS (1)
  1. HUMIRA [Suspect]
     Indication: CROHN'S DISEASE

REACTIONS (4)
  - GENERAL PHYSICAL HEALTH DETERIORATION [None]
  - LABORATORY TEST ABNORMAL [None]
  - DIARRHOEA [None]
  - PAIN [None]
